FAERS Safety Report 21926997 (Version 1)
Quarter: 2023Q1

REPORT INFORMATION
  Report Type: Spontaneous
  Country: US (occurrence: None)
  Receive Date: 20230128
  Receipt Date: 20230128
  Transmission Date: 20230417
  Serious: Yes (Disabling)
  Sender: FDA-Public Use
  Company Number: None

PATIENT
  Age: 60 Year
  Sex: Female
  Weight: 63.9 kg

DRUGS (11)
  1. RECLAST [Suspect]
     Active Substance: ZOLEDRONIC ACID
     Indication: Osteoporosis
     Dates: start: 20230112, end: 20230112
  2. RECLAST [Suspect]
     Active Substance: ZOLEDRONIC ACID
     Indication: Stress fracture
  3. SERTRALINE [Concomitant]
     Active Substance: SERTRALINE HYDROCHLORIDE
  4. LEVOTHYROXINE [Concomitant]
     Active Substance: LEVOTHYROXINE
  5. LISINOPRIL/HCTZ [Concomitant]
  6. DICLOFENAC SODIUM [Concomitant]
     Active Substance: DICLOFENAC SODIUM
  7. TRAZODONE [Concomitant]
     Active Substance: TRAZODONE HYDROCHLORIDE
  8. VITAMIN D [Concomitant]
     Active Substance: VITAMIN D NOS
  9. VITAMIN C [Concomitant]
     Active Substance: ASCORBIC ACID
  10. CALCIUM [Concomitant]
     Active Substance: CALCIUM
  11. VOLTAREN [Concomitant]
     Active Substance: DICLOFENAC SODIUM

REACTIONS (13)
  - Bone pain [None]
  - Arthralgia [None]
  - Myalgia [None]
  - Headache [None]
  - Abdominal pain [None]
  - Lymphadenopathy [None]
  - Neck pain [None]
  - Bedridden [None]
  - Loss of personal independence in daily activities [None]
  - Arthralgia [None]
  - Infusion related reaction [None]
  - Arthritis [None]
  - Toxicity to various agents [None]

NARRATIVE: CASE EVENT DATE: 20230112
